FAERS Safety Report 4507245-0 (Version None)
Quarter: 2004Q4

REPORT INFORMATION
  Report Type: 
  Country: None (occurrence: None)
  Receive Date: 20041115
  Receipt Date: 20041027
  Transmission Date: 20050328
  Serious: Yes (Life-Threatening, Hospitalization)
  Sender: FDA-Public Use
  Company Number: WSDF_00450

PATIENT
  Age: 39 Year
  Sex: Female

DRUGS (1)
  1. WINRHO SDF [Suspect]
     Indication: IDIOPATHIC THROMBOCYTOPENIC PURPURA
     Dates: start: 20040623, end: 20040623

REACTIONS (30)
  - BACTERIAL INFECTION [None]
  - BLOOD BILIRUBIN INCREASED [None]
  - BLOOD LACTATE DEHYDROGENASE INCREASED [None]
  - BRAIN OEDEMA [None]
  - CATHETER RELATED INFECTION [None]
  - CHILLS [None]
  - CHROMATURIA [None]
  - CONFUSIONAL STATE [None]
  - ENCEPHALOPATHY [None]
  - EOSINOPHILIA [None]
  - HAEMOGLOBIN DECREASED [None]
  - HYPERACUSIS [None]
  - HYPERGLYCAEMIA [None]
  - HYPOTENSION [None]
  - INFUSION RELATED REACTION [None]
  - INTRAVASCULAR HAEMOLYSIS [None]
  - JAUNDICE [None]
  - LETHARGY [None]
  - LUNG INFILTRATION [None]
  - MENORRHAGIA [None]
  - MICROANGIOPATHIC HAEMOLYTIC ANAEMIA [None]
  - NERVOUS SYSTEM DISORDER [None]
  - PYREXIA [None]
  - RASH [None]
  - RED BLOOD CELL SCHISTOCYTES PRESENT [None]
  - RENAL FAILURE ACUTE [None]
  - SPLENOMEGALY [None]
  - THROMBOTIC THROMBOCYTOPENIC PURPURA [None]
  - VISION BLURRED [None]
  - VOMITING [None]
